FAERS Safety Report 21835692 (Version 1)
Quarter: 2023Q1

REPORT INFORMATION
  Report Type: Spontaneous
  Country: US (occurrence: US)
  Receive Date: 20230109
  Receipt Date: 20230109
  Transmission Date: 20230417
  Serious: Yes (Other)
  Sender: FDA-Public Use
  Company Number: US-BRISTOL-MYERS SQUIBB COMPANY-2023-001325

PATIENT
  Age: 77 Day
  Sex: Female

DRUGS (1)
  1. REVLIMID [Suspect]
     Active Substance: LENALIDOMIDE
     Indication: Plasma cell myeloma
     Dosage: FREQUENCY : DAILY.
     Route: 048
     Dates: start: 20220425

REACTIONS (3)
  - Bone cancer [Unknown]
  - Neoplasm malignant [Unknown]
  - Tooth disorder [Unknown]
